FAERS Safety Report 23759067 (Version 1)
Quarter: 2024Q2

REPORT INFORMATION
  Report Type: Spontaneous
  Country: JP (occurrence: JP)
  Receive Date: 20240418
  Receipt Date: 20240418
  Transmission Date: 20240716
  Serious: Yes (Hospitalization, Other)
  Sender: FDA-Public Use
  Company Number: JP-ORGANON-O2404JPN001946

PATIENT
  Sex: Female

DRUGS (2)
  1. ALENDRONATE SODIUM [Suspect]
     Active Substance: ALENDRONATE SODIUM
     Dosage: UNK
     Route: 048
  2. MINODRONIC ACID [Suspect]
     Active Substance: MINODRONIC ACID
     Dosage: UNK
     Route: 065

REACTIONS (1)
  - Lumbar vertebral fracture [Recovering/Resolving]
